FAERS Safety Report 8258389-1 (Version None)
Quarter: 2012Q1

REPORT INFORMATION
  Report Type: 
  Country: None (occurrence: None)
  Receive Date: 20120322
  Receipt Date: 20111227
  Transmission Date: 20120608
  Serious: Yes (Hospitalization)
  Sender: FDA-Public Use
  Company Number: UTC-013949

PATIENT
  Age: 63 Year
  Sex: Female
  Weight: 43.64 kg

DRUGS (5)
  1. REVATIO [Concomitant]
  2. LETAIRIS [Concomitant]
  3. TYVASO [Suspect]
     Indication: COR PULMONALE CHRONIC
     Dosage: 216 MCG (54 MCG, 4 IN 1 D),INHALATION
     Route: 055
     Dates: start: 20110614
  4. DIURETICS (DIURETICS) [Concomitant]
  5. COUMADIN [Concomitant]

REACTIONS (1)
  - FLUID RETENTION [None]
